FAERS Safety Report 11206348 (Version 1)
Quarter: 2015Q2

REPORT INFORMATION
  Report Type: Spontaneous
  Country: DE (occurrence: DE)
  Receive Date: 20150622
  Receipt Date: 20150622
  Transmission Date: 20150821
  Serious: Yes (Other)
  Sender: FDA-Public Use
  Company Number: DE-MYLANLABS-2015M1020036

PATIENT

DRUGS (1)
  1. FASTJEKT [Suspect]
     Active Substance: EPINEPHRINE

REACTIONS (1)
  - Device failure [Unknown]
